FAERS Safety Report 8578848-1 (Version None)
Quarter: 2012Q3

REPORT INFORMATION
  Report Type: 
  Country: None (occurrence: None)
  Receive Date: 20120808
  Receipt Date: 20120802
  Transmission Date: 20120928
  Serious: Yes (Other)
  Sender: FDA-Public Use
  Company Number: PHHY2012BR046494

PATIENT
  Age: 67 Year
  Sex: Female

DRUGS (5)
  1. ZOLEDRONOC ACID [Suspect]
     Dosage: 5 MG, UNK
     Route: 042
     Dates: start: 20120501
  2. ACETAMINOPHEN [Concomitant]
     Dosage: 1500/DAY, DURING 3 DAYS
  3. ZOLEDRONOC ACID [Suspect]
     Indication: TRAUMATIC FRACTURE
     Dosage: 5 MG, UNK
     Route: 042
     Dates: start: 20110401
  4. CALCIUM [Concomitant]
     Indication: TRAUMATIC FRACTURE
     Dates: start: 20110401, end: 20120401
  5. VITAMIN D [Concomitant]
     Indication: TRAUMATIC FRACTURE
     Dates: start: 20110401, end: 20120401

REACTIONS (2)
  - OSTEONECROSIS [None]
  - FEMORAL NECK FRACTURE [None]
